FAERS Safety Report 21898197 (Version 1)
Quarter: 2023Q1

REPORT INFORMATION
  Report Type: Spontaneous
  Country: US (occurrence: US)
  Receive Date: 20230123
  Receipt Date: 20230123
  Transmission Date: 20230418
  Serious: Yes (Other)
  Sender: FDA-Public Use
  Company Number: US-PFIZER INC-202300028705

PATIENT
  Age: 56 Year
  Sex: Female
  Weight: 58.06 kg

DRUGS (4)
  1. PREMPRO [Suspect]
     Active Substance: ESTROGENS, CONJUGATED\MEDROXYPROGESTERONE ACETATE
     Indication: Premature menopause
     Dosage: 0.3 MG, DAILY
     Dates: start: 2017
  2. HUMIRA [Concomitant]
     Active Substance: ADALIMUMAB
     Indication: Systemic lupus erythematosus
     Dosage: 40 MG, CYCLIC (EVERY OTHER WEEK)
  3. HYDROXYCHLOROQUINE [Concomitant]
     Active Substance: HYDROXYCHLOROQUINE
     Indication: Systemic lupus erythematosus
     Dosage: 200 MG
  4. LEFLUNOMIDE [Concomitant]
     Active Substance: LEFLUNOMIDE
     Indication: Rheumatoid arthritis
     Dosage: 10 MG, DAILY

REACTIONS (3)
  - Systemic lupus erythematosus [Unknown]
  - Therapeutic response unexpected [Recovering/Resolving]
  - Memory impairment [Unknown]

NARRATIVE: CASE EVENT DATE: 20170101
